FAERS Safety Report 23333154 (Version 3)
Quarter: 2024Q3

REPORT INFORMATION
  Report Type: Report from Study
  Country: CA (occurrence: CA)
  Receive Date: 20231222
  Receipt Date: 20240828
  Transmission Date: 20241017
  Serious: Yes (Other)
  Sender: TAKEDA
  Company Number: CA-TAKEDA-2023TUS121943

PATIENT
  Sex: Female

DRUGS (6)
  1. VEDOLIZUMAB [Suspect]
     Active Substance: VEDOLIZUMAB
     Indication: Colitis ulcerative
     Dosage: 300 MILLIGRAM
     Route: 042
     Dates: start: 20230919, end: 20240807
  2. ENTOCORT [Concomitant]
     Active Substance: BUDESONIDE
     Indication: Colitis
     Dosage: 3 MILLIGRAM, QD
  3. LOPERAMIDE [Concomitant]
     Active Substance: LOPERAMIDE
     Indication: Colitis
     Dosage: 2 MILLIGRAM, QID
  4. TOPIRAMATE [Concomitant]
     Active Substance: TOPIRAMATE
     Dosage: UNK
  5. LAMOTRIGINE [Concomitant]
     Active Substance: LAMOTRIGINE
     Dosage: UNK
  6. DIVALPROEX SODIUM [Concomitant]
     Active Substance: DIVALPROEX SODIUM
     Dosage: UNK

REACTIONS (2)
  - Haematochezia [Unknown]
  - Therapeutic reaction time decreased [Unknown]
